FAERS Safety Report 5206831-2 (Version None)
Quarter: 2006Q4

REPORT INFORMATION
  Report Type: 
  Country: None (occurrence: None)
  Receive Date: 20061026
  Receipt Date: 20060819
  Transmission Date: 20070319
  Serious: No
  Sender: FDA-Public Use
  Company Number: 2006101610

PATIENT
  Sex: Female

DRUGS (6)
  1. LYRICA [Suspect]
     Indication: NEUROPATHY
     Dosage: 60 MG (30 MG, 2 IN 1 D)
     Dates: start: 20060801, end: 20060818
  2. METFORMIN HCL [Concomitant]
  3. AVANDIA [Concomitant]
  4. CLONAZEPAM [Concomitant]
  5. TRAZODONE HCL [Concomitant]
  6. ABILIFY [Concomitant]

REACTIONS (2)
  - FATIGUE [None]
  - HEADACHE [None]
